FAERS Safety Report 13711097 (Version 1)
Quarter: 2017Q2

REPORT INFORMATION
  Report Type: Spontaneous
  Country: US (occurrence: US)
  Receive Date: 20170630
  Receipt Date: 20170630
  Transmission Date: 20170830
  Serious: Yes (Life-Threatening, Hospitalization)
  Sender: FDA-Public Use
  Company Number: None

PATIENT
  Age: 83 Year
  Sex: Male
  Weight: 50.9 kg

DRUGS (1)
  1. CEFTRIAXONE. [Suspect]
     Active Substance: CEFTRIAXONE
     Indication: SURGERY
     Route: 042
     Dates: start: 20130421, end: 20130426

REACTIONS (2)
  - Chronic hepatic failure [None]
  - Agranulocytosis [None]

NARRATIVE: CASE EVENT DATE: 20130425
